FAERS Safety Report 7787223-9 (Version None)
Quarter: 2011Q3

REPORT INFORMATION
  Report Type: 
  Country: None (occurrence: None)
  Receive Date: 20110929
  Receipt Date: 20110919
  Transmission Date: 20111222
  Serious: Yes (Hospitalization)
  Sender: FDA-Public Use
  Company Number: DK-JNJFOC-20100402293

PATIENT
  Sex: Male
  Weight: 87.7 kg

DRUGS (7)
  1. REMICADE [Suspect]
     Indication: COLITIS ULCERATIVE
     Route: 042
     Dates: start: 20100107, end: 20100107
  2. ADALIMUMAB [Concomitant]
     Indication: COLITIS ULCERATIVE
     Dosage: REPORTED INDICATION WAS ANTIBODIES AND ALLERGIC REACTION AGAINST INFLIXIMAB
     Route: 058
     Dates: start: 20100126, end: 20100206
  3. MESALAMINE [Concomitant]
     Indication: COLITIS ULCERATIVE
     Route: 048
     Dates: start: 20091203, end: 20100206
  4. AZATHIOPRINE [Concomitant]
     Indication: COLITIS ULCERATIVE
     Route: 048
     Dates: start: 20090312
  5. PREDNISOLONE [Concomitant]
     Indication: COLITIS ULCERATIVE
     Route: 048
     Dates: start: 20100118, end: 20100219
  6. UNSPECIFED MEDICATIONS [Concomitant]
     Indication: SLEEP DISORDER THERAPY
     Route: 048
     Dates: start: 20100203, end: 20100219
  7. UNIKALK BASIC [Concomitant]
     Indication: COLITIS ULCERATIVE
     Route: 048
     Dates: start: 20090312, end: 20100125

REACTIONS (4)
  - ABDOMINAL ABSCESS [None]
  - COLITIS ULCERATIVE [None]
  - COLECTOMY [None]
  - PYREXIA [None]
